FAERS Safety Report 16098134 (Version 21)
Quarter: 2021Q4

REPORT INFORMATION
  Report Type: Spontaneous
  Country: CA (occurrence: CA)
  Receive Date: 20190320
  Receipt Date: 20211122
  Transmission Date: 20220303
  Serious: Yes (Other)
  Sender: FDA-Public Use
  Company Number: CA-CELLTRION INC.-2018CA023522

PATIENT

DRUGS (39)
  1. INFLECTRA [Suspect]
     Active Substance: INFLIXIMAB-DYYB
     Indication: Rheumatoid arthritis
     Dosage: 200 MG EVERY 0, 2, 6 WEEKS THEN EVERY 8 WEEKS
     Route: 042
     Dates: start: 20181019, end: 20190125
  2. INFLECTRA [Suspect]
     Active Substance: INFLIXIMAB-DYYB
     Indication: Colitis ulcerative
     Dosage: 200 MG EVERY 0, 2, 6 WEEKS THEN EVERY 8 WEEKS
     Route: 042
     Dates: start: 20181102
  3. INFLECTRA [Suspect]
     Active Substance: INFLIXIMAB-DYYB
     Dosage: 200 MG EVERY 0, 2, 6 WEEKS THEN EVERY 8 WEEKS
     Route: 042
     Dates: start: 20181129
  4. INFLECTRA [Suspect]
     Active Substance: INFLIXIMAB-DYYB
     Dosage: 200 MG EVERY 0, 2, 6 WEEKS THEN EVERY 8 WEEKS
     Route: 042
     Dates: start: 20190125
  5. INFLECTRA [Suspect]
     Active Substance: INFLIXIMAB-DYYB
     Dosage: 200 MG EVERY 6 WEEKS
     Route: 042
     Dates: start: 20190306, end: 20190415
  6. INFLECTRA [Suspect]
     Active Substance: INFLIXIMAB-DYYB
     Dosage: 200 MG  EVERY 6 WEEKS
     Route: 042
     Dates: start: 20190401
  7. INFLECTRA [Suspect]
     Active Substance: INFLIXIMAB-DYYB
     Dosage: 200 MG  EVERY 6 WEEKS
     Route: 042
     Dates: start: 20190415
  8. INFLECTRA [Suspect]
     Active Substance: INFLIXIMAB-DYYB
     Dosage: 10 MG/KG, ROUND UP EVERY 4 WEEKS
     Route: 042
     Dates: start: 20190501
  9. INFLECTRA [Suspect]
     Active Substance: INFLIXIMAB-DYYB
     Dosage: 10 MG/KG, ROUND UP EVERY 4 WEEKS
     Route: 042
     Dates: start: 20190501
  10. INFLECTRA [Suspect]
     Active Substance: INFLIXIMAB-DYYB
     Dosage: 10 MG/KG, ROUND UP EVERY 4 WEEKS
     Route: 042
     Dates: start: 20190514
  11. INFLECTRA [Suspect]
     Active Substance: INFLIXIMAB-DYYB
     Dosage: 10 MG/KG, ROUND UP EVERY 4 WEEKS
     Route: 042
     Dates: start: 20190710
  12. INFLECTRA [Suspect]
     Active Substance: INFLIXIMAB-DYYB
     Dosage: 10 MG/KG, ROUND UP EVERY 4 WEEKS
     Route: 042
     Dates: start: 20190710
  13. INFLECTRA [Suspect]
     Active Substance: INFLIXIMAB-DYYB
     Dosage: 10 MG/KG, ROUND UP EVERY 4 WEEKS
     Route: 042
     Dates: start: 20190806
  14. INFLECTRA [Suspect]
     Active Substance: INFLIXIMAB-DYYB
     Dosage: 10 MG/KG, ROUND UP EVERY 4 WEEKS
     Route: 042
     Dates: start: 20191001
  15. INFLECTRA [Suspect]
     Active Substance: INFLIXIMAB-DYYB
     Dosage: 10 MG/KG, ROUND UP EVERY 4 WEEKS
     Route: 042
     Dates: start: 20191127
  16. INFLECTRA [Suspect]
     Active Substance: INFLIXIMAB-DYYB
     Dosage: 10 MG/KG, ROUND UP EVERY 4 WEEKS
     Route: 042
     Dates: start: 20191224
  17. INFLECTRA [Suspect]
     Active Substance: INFLIXIMAB-DYYB
     Dosage: 10 MG/KG, ROUND UP EVERY 4 WEEKS
     Route: 042
     Dates: start: 20200219
  18. INFLECTRA [Suspect]
     Active Substance: INFLIXIMAB-DYYB
     Dosage: 10 MG/KG, ROUND UP EVERY 4 WEEKS
     Route: 042
     Dates: start: 20200316
  19. INFLECTRA [Suspect]
     Active Substance: INFLIXIMAB-DYYB
     Dosage: 10 MG/KG, ROUND UP EVERY 4 WEEKS
     Route: 042
     Dates: start: 20200411
  20. INFLECTRA [Suspect]
     Active Substance: INFLIXIMAB-DYYB
     Dosage: 10 MG/KG, ROUND UP EVERY 4 WEEKS
     Route: 042
     Dates: start: 20200520
  21. INFLECTRA [Suspect]
     Active Substance: INFLIXIMAB-DYYB
     Dosage: 10 MG/KG, ROUND UP EVERY 4 WEEKS
     Route: 042
     Dates: start: 20200620
  22. INFLECTRA [Suspect]
     Active Substance: INFLIXIMAB-DYYB
     Dosage: 10 MG/KG, ROUND UP EVERY 4 WEEKS
     Route: 042
     Dates: start: 20200815
  23. INFLECTRA [Suspect]
     Active Substance: INFLIXIMAB-DYYB
     Dosage: 10 MG/KG, ROUND UP EVERY 4 WEEKS
     Route: 042
     Dates: start: 20200815
  24. INFLECTRA [Suspect]
     Active Substance: INFLIXIMAB-DYYB
     Dosage: 10 MG/KG, ROUND UP EVERY 4 WEEKS
     Route: 042
     Dates: start: 20200912
  25. INFLECTRA [Suspect]
     Active Substance: INFLIXIMAB-DYYB
     Dosage: 10 MG/KG, ROUND UP EVERY 4 WEEKS
     Route: 042
     Dates: start: 20201010, end: 20201010
  26. INFLECTRA [Suspect]
     Active Substance: INFLIXIMAB-DYYB
     Dosage: 10 MG/KG, ROUND UP EVERY 4 WEEKS
     Route: 042
     Dates: start: 20201114
  27. INFLECTRA [Suspect]
     Active Substance: INFLIXIMAB-DYYB
     Dosage: 10 MG/KG, ROUND UP EVERY 4 WEEKS
     Route: 042
     Dates: start: 20210420
  28. INFLECTRA [Suspect]
     Active Substance: INFLIXIMAB-DYYB
     Dosage: 10 MG/KG, ROUND UP EVERY 4 WEEKS
     Route: 042
     Dates: start: 20210528
  29. INFLECTRA [Suspect]
     Active Substance: INFLIXIMAB-DYYB
     Dosage: 10 MG/KG, ROUND UP EVERY 4 WEEKS
     Route: 042
     Dates: start: 20210624
  30. INFLECTRA [Suspect]
     Active Substance: INFLIXIMAB-DYYB
     Dosage: 10 MG/KG, ROUND UP EVERY 4 WEEKS
     Route: 042
     Dates: start: 20210820
  31. INFLECTRA [Suspect]
     Active Substance: INFLIXIMAB-DYYB
     Dosage: 10 MG/KG, ROUND UP EVERY 4 WEEKS
     Route: 042
     Dates: start: 20210917
  32. INFLECTRA [Suspect]
     Active Substance: INFLIXIMAB-DYYB
     Dosage: 10 MG/KG, EVERY 4 WEEKS
     Route: 042
     Dates: start: 20211112
  33. AZATHIOPRINE [Concomitant]
     Active Substance: AZATHIOPRINE
     Dosage: 50 MG, DAILY
     Route: 048
  34. CYCLOSPORINE [Concomitant]
     Active Substance: CYCLOSPORINE
     Dosage: (25/50) MG, 2X/DAY (AM AND PM)
     Route: 048
  35. GABAPENTIN [Concomitant]
     Active Substance: GABAPENTIN
     Dosage: 200 MG, Q (EVERY) HS (AT BEDTIME)
     Route: 065
  36. FOLIC ACID [Concomitant]
     Active Substance: FOLIC ACID
     Dosage: 5 MG, WEEKLY
     Route: 065
  37. MESALAMINE [Concomitant]
     Active Substance: MESALAMINE
     Dosage: 1.2 G, DAILY
     Route: 065
  38. METHOTREXATE SODIUM [Concomitant]
     Active Substance: METHOTREXATE SODIUM
     Dosage: 100 ML, WEEKLY
     Dates: start: 201909
  39. SULFADIAZINE\TRIMETHOPRIM [Concomitant]
     Active Substance: SULFADIAZINE\TRIMETHOPRIM
     Dosage: UNK, 3 TIMES PER WEEK FOR 3 MONTHS
     Dates: start: 20190820

REACTIONS (17)
  - Pneumonia [Recovered/Resolved]
  - Drug level below therapeutic [Recovering/Resolving]
  - Off label use [Unknown]
  - Inappropriate schedule of product administration [Unknown]
  - Off label use [Unknown]
  - Intentional product use issue [Unknown]
  - Incorrect dose administered [Unknown]
  - Antibody test positive [Unknown]
  - Blood pressure fluctuation [Unknown]
  - Body temperature decreased [Unknown]
  - Condition aggravated [Recovered/Resolved]
  - Cough [Not Recovered/Not Resolved]
  - Dry eye [Unknown]
  - Faecal calprotectin increased [Unknown]
  - Oral herpes [Unknown]
  - Weight decreased [Unknown]
  - White blood cell count decreased [Recovered/Resolved]

NARRATIVE: CASE EVENT DATE: 20180101
